FAERS Safety Report 7659545-3 (Version None)
Quarter: 2011Q3

REPORT INFORMATION
  Report Type: 
  Country: None (occurrence: None)
  Receive Date: 20110805
  Receipt Date: 20110728
  Transmission Date: 20111222
  Serious: Yes (Death, Hospitalization)
  Sender: FDA-Public Use
  Company Number: IT-ELI_LILLY_AND_COMPANY-IT201108001751

PATIENT
  Age: 76 Year
  Sex: Male

DRUGS (5)
  1. PYRIDOSTIGMINE BROMIDE [Concomitant]
  2. CARBOPLATIN [Concomitant]
  3. ASPIRIN [Concomitant]
  4. GEMCITABINE HYDROCHLORIDE [Suspect]
     Indication: NON-SMALL CELL LUNG CANCER
     Dosage: UNK
  5. LANSOPRAZOLE [Concomitant]

REACTIONS (3)
  - RESPIRATORY FAILURE [None]
  - CONVULSION [None]
  - LEUKOENCEPHALOPATHY [None]
